FAERS Safety Report 11104464 (Version 1)
Quarter: 2015Q2

REPORT INFORMATION
  Report Type: Spontaneous
  Country: US (occurrence: US)
  Receive Date: 20150511
  Receipt Date: 20150511
  Transmission Date: 20150821
  Serious: Yes (Death)
  Sender: FDA-Public Use
  Company Number: US-PERRIGO-15US004720

PATIENT
  Sex: Male

DRUGS (2)
  1. TESTOSTERONE CYPIONATE USP RX 200 MG/ML 9Z8 [Suspect]
     Active Substance: TESTOSTERONE CYPIONATE
     Indication: BLOOD TESTOSTERONE ABNORMAL
     Dosage: UNK
     Route: 065
     Dates: start: 2009, end: 20130323
  2. ANDROGEL [Suspect]
     Active Substance: TESTOSTERONE
     Indication: BLOOD TESTOSTERONE ABNORMAL
     Dosage: UNK
     Route: 065
     Dates: start: 2009, end: 20130323

REACTIONS (1)
  - Death [Fatal]

NARRATIVE: CASE EVENT DATE: 20130323
